FAERS Safety Report 11857994 (Version 1)
Quarter: 2015Q4

REPORT INFORMATION
  Report Type: Spontaneous
  Country: GB (occurrence: GB)
  Receive Date: 20151222
  Receipt Date: 20151222
  Transmission Date: 20160305
  Serious: Yes (Other)
  Sender: FDA-Public Use
  Company Number: GB-WATSON-2015-17200

PATIENT
  Age: 56 Year
  Sex: Female
  Weight: 68.94 kg

DRUGS (2)
  1. PENTASA [Concomitant]
     Active Substance: MESALAMINE
     Indication: PRODUCT USED FOR UNKNOWN INDICATION
     Dosage: 2 G, BID
     Route: 065
  2. PREDNISOLONE (UNKNOWN) [Suspect]
     Active Substance: PREDNISOLONE
     Indication: COLITIS ULCERATIVE
     Dosage: 30 MG, DAILY (FOR 14 DAYS THEN DROP)
     Route: 048
     Dates: start: 20150619, end: 20150731

REACTIONS (4)
  - Muscle spasms [Recovering/Resolving]
  - Contusion [Recovering/Resolving]
  - Pain [Recovering/Resolving]
  - Muscle rigidity [Recovering/Resolving]

NARRATIVE: CASE EVENT DATE: 20150628
